FAERS Safety Report 9201420 (Version 2)
Quarter: 2013Q2

REPORT INFORMATION
  Report Type: Spontaneous
  Country: US (occurrence: US)
  Receive Date: 20130401
  Receipt Date: 20130411
  Transmission Date: 20140414
  Serious: Yes (Death)
  Sender: FDA-Public Use
  Company Number: US-PFIZER INC-2013101891

PATIENT
  Age: 41 Year
  Sex: Female

DRUGS (1)
  1. CAMPTOSAR [Suspect]
     Indication: NEOPLASM
     Dosage: 240 MG, EVERY 3 WEEKS
     Dates: start: 20121012

REACTIONS (1)
  - Death [Fatal]
